FAERS Safety Report 19437338 (Version 2)
Quarter: 2021Q3

REPORT INFORMATION
  Report Type: Spontaneous
  Country: US (occurrence: US)
  Receive Date: 20210618
  Receipt Date: 20210915
  Transmission Date: 20211014
  Serious: No
  Sender: FDA-Public Use
  Company Number: US-BIOHAVEN PHARMACEUTICALS-2021BHV00590

PATIENT
  Age: 52 Year
  Sex: Female
  Weight: 92.06 kg

DRUGS (29)
  1. NARATRIPTAN [Concomitant]
     Active Substance: NARATRIPTAN HYDROCHLORIDE
     Dosage: 2.5 MG AT ONSET OF HA, MAY REPEAT AFTER 2 HOURS IF HEADACHE RECURS
     Route: 048
     Dates: start: 20161216
  2. PRAMIPEXOLE. [Concomitant]
     Active Substance: PRAMIPEXOLE
     Dosage: 0.5 MG, 1X/DAY ON MONDAY AND TUESDAY
     Route: 048
     Dates: start: 20190329
  3. FLUTICASONE. [Concomitant]
     Active Substance: FLUTICASONE
     Dosage: 1 ACTUATIONS EACH NOSTRIL, 2X/DAY
     Dates: start: 20160712
  4. HYDROXYZINE HYDROCHLORIDE. [Concomitant]
     Active Substance: HYDROXYZINE HYDROCHLORIDE
     Dosage: 1?2 TABLETS, 2X/DAY AS NEEDED
     Route: 048
     Dates: start: 20210426
  5. PROAIR HFA [Concomitant]
     Active Substance: ALBUTEROL SULFATE
     Dosage: 2 PUFFS EVERY 4?6  HOURS AS NEEDED
     Dates: start: 20170803
  6. ZOFRAN [Concomitant]
     Active Substance: ONDANSETRON HYDROCHLORIDE
     Dosage: 4 MG, UP TO 2X/DAY AS NEEDED
     Route: 048
     Dates: start: 20141208
  7. MELATONIN [Concomitant]
     Active Substance: MELATONIN
     Dosage: 5 MG, 1X/DAY
     Route: 048
     Dates: start: 20210113
  8. PRAMIPEXOLE. [Concomitant]
     Active Substance: PRAMIPEXOLE
     Dosage: 0.25 MG, 1X/DAY AT BEDTIME
     Route: 048
     Dates: start: 20190329
  9. ATROVENT [Concomitant]
     Active Substance: IPRATROPIUM BROMIDE
     Dosage: 2 ACTUATIONS EACH NOSTRIL, UP TO 3X/DAY
     Route: 045
     Dates: start: 20161216
  10. UNSPECIFIED TRIPTANS [Suspect]
     Active Substance: UNSPECIFIED INGREDIENT
  11. LANSOPRAZOLE. [Concomitant]
     Active Substance: LANSOPRAZOLE
     Dosage: 15 MG, 1X/DAY
     Route: 048
  12. PROGESTERONE. [Concomitant]
     Active Substance: PROGESTERONE
     Dosage: 100 MG, 1X/DAY
     Route: 048
     Dates: start: 20210427
  13. XELJANZ [Concomitant]
     Active Substance: TOFACITINIB CITRATE
     Dosage: 11 MG, 1X/DAY
     Route: 048
     Dates: start: 20210113
  14. MILK THISTLE [Concomitant]
     Active Substance: DIETARY SUPPLEMENT\HERBALS\MILK THISTLE
     Dosage: 1 UNK, 1X/DAY
     Route: 048
     Dates: start: 20210113
  15. CETIRIZINE [Concomitant]
     Active Substance: CETIRIZINE HYDROCHLORIDE
     Dosage: 10 MG, 1X/DAY
     Route: 048
     Dates: start: 20181005
  16. FENOFIBRATE. [Concomitant]
     Active Substance: FENOFIBRATE
     Dosage: 145 MG, 1X/DAY
     Route: 048
     Dates: start: 20191108
  17. AMITRIPTYLINE [Suspect]
     Active Substance: AMITRIPTYLINE
  18. TYLENOL [Suspect]
     Active Substance: ACETAMINOPHEN
  19. PREDNISONE. [Concomitant]
     Active Substance: PREDNISONE
     Dosage: 5 MG, 1X/DAY
     Route: 048
     Dates: start: 20191108
  20. METHOTREXATE. [Concomitant]
     Active Substance: METHOTREXATE
     Dosage: 5 MG, 1X/WEEK
     Route: 048
     Dates: start: 20210113
  21. NURTEC ODT [Suspect]
     Active Substance: RIMEGEPANT SULFATE
     Indication: MIGRAINE WITHOUT AURA
     Dosage: 75 MG PRN (AS NEEDED), MAY REPEAT IN 2 HOURS IF NEEDED. NO MORE THAN 2 PER 24 HOURS.
     Dates: start: 20200902, end: 20210430
  22. ASPIRIN. [Suspect]
     Active Substance: ASPIRIN
  23. BUSPIRONE HYDROCHLORIDE. [Concomitant]
     Active Substance: BUSPIRONE HYDROCHLORIDE
     Dosage: 10 MG, 2X/DAY
     Route: 048
     Dates: start: 20210426
  24. BUPROPION. [Concomitant]
     Active Substance: BUPROPION
     Dosage: 300 MG, 1X/DAY
     Route: 048
     Dates: start: 20180913
  25. MULTIVITAMIN [Concomitant]
     Active Substance: VITAMINS
     Dosage: 1 DF, 1X/DAY
     Route: 048
     Dates: start: 20170831
  26. HYDROXYCHLOROQUINE SULFATE. [Concomitant]
     Active Substance: HYDROXYCHLOROQUINE SULFATE
     Dosage: 400 MG, 1X/DAY
     Route: 048
     Dates: start: 20191108
  27. EPIPEN [Concomitant]
     Active Substance: EPINEPHRINE
     Dosage: 0.3 MG ONCE
     Route: 030
     Dates: start: 20120925
  28. SINGULAIR [Concomitant]
     Active Substance: MONTELUKAST SODIUM
     Dosage: 10 MG, 1X/DAY AT NIGHT
     Route: 048
     Dates: start: 20161216
  29. FOLIC ACID. [Concomitant]
     Active Substance: FOLIC ACID
     Dosage: 1 MG, 1X/DAY
     Route: 048
     Dates: start: 20210113

REACTIONS (3)
  - Hypertension [Recovered/Resolved]
  - Drug ineffective [Recovered/Resolved]
  - Off label use [Recovered/Resolved]

NARRATIVE: CASE EVENT DATE: 20200902
